FAERS Safety Report 15365164 (Version 1)
Quarter: 2018Q3

REPORT INFORMATION
  Report Type: Spontaneous
  Country: US (occurrence: US)
  Receive Date: 20180910
  Receipt Date: 20180910
  Transmission Date: 20181010
  Serious: Yes (Other)
  Sender: FDA-Public Use
  Company Number: US-009507513-1809USA002521

PATIENT
  Sex: Female

DRUGS (4)
  1. DIOVAN [Concomitant]
     Active Substance: VALSARTAN
     Dosage: UNK
  2. VANCOMYCIN [Suspect]
     Active Substance: VANCOMYCIN
  3. FLAGYL [Concomitant]
     Active Substance: METRONIDAZOLE\METRONIDAZOLE HYDROCHLORIDE
     Dosage: UNK
  4. DIFICID [Suspect]
     Active Substance: FIDAXOMICIN
     Indication: CLOSTRIDIUM DIFFICILE INFECTION
     Dosage: UNK; ON AND OFF FOR ABOUT 6 YEARS
     Route: 048
     Dates: start: 2011, end: 2017

REACTIONS (5)
  - Hypoacusis [Unknown]
  - Diverticulitis [Unknown]
  - Hiatus hernia [Unknown]
  - Adiposis dolorosa [Unknown]
  - Drug effect incomplete [Recovered/Resolved]
